FAERS Safety Report 18807398 (Version 1)
Quarter: 2021Q1

REPORT INFORMATION
  Report Type: Spontaneous
  Country: DE (occurrence: DE)
  Receive Date: 20210129
  Receipt Date: 20210129
  Transmission Date: 20210419
  Serious: Yes (Other)
  Sender: FDA-Public Use
  Company Number: DE-JNJFOC-20210140252

PATIENT
  Sex: Female

DRUGS (1)
  1. REGAINE WOMAN 2% PR?008381 [Suspect]
     Active Substance: MINOXIDIL
     Indication: PRODUCT USED FOR UNKNOWN INDICATION
     Dosage: DAILY
     Route: 065

REACTIONS (4)
  - Eye haemorrhage [Unknown]
  - Contraindicated product administered [Unknown]
  - Underdose [Unknown]
  - Off label use [Unknown]
